FAERS Safety Report 16953679 (Version 1)
Quarter: 2019Q4

REPORT INFORMATION
  Report Type: Spontaneous
  Country: BR (occurrence: BR)
  Receive Date: 20191023
  Receipt Date: 20191023
  Transmission Date: 20200122
  Serious: Yes (Other)
  Sender: FDA-Public Use
  Company Number: BR-TAKEDA-2019TUS058926

PATIENT
  Age: 40 Year
  Sex: Female
  Weight: 65 kg

DRUGS (1)
  1. DEXILANT [Suspect]
     Active Substance: DEXLANSOPRAZOLE
     Indication: GASTROOESOPHAGEAL REFLUX DISEASE
     Dosage: 60 MILLIGRAM, QD
     Route: 048
     Dates: start: 20191002, end: 20191014

REACTIONS (9)
  - Dizziness [Recovered/Resolved]
  - Speech disorder [Recovered/Resolved]
  - Language disorder [Recovered/Resolved]
  - Asthenia [Recovered/Resolved]
  - Loss of personal independence in daily activities [Recovered/Resolved]
  - Overdose [Recovered/Resolved]
  - Muscular weakness [Recovered/Resolved]
  - Dysgeusia [Recovered/Resolved]
  - Vertigo [Recovered/Resolved]

NARRATIVE: CASE EVENT DATE: 20191002
